FAERS Safety Report 10035470 (Version 1)
Quarter: 2014Q1

REPORT INFORMATION
  Report Type: Spontaneous
  Country: US (occurrence: US)
  Receive Date: 20140325
  Receipt Date: 20140325
  Transmission Date: 20141002
  Serious: No
  Sender: FDA-Public Use
  Company Number: US-PFIZER INC-2014082877

PATIENT
  Age: 76 Year
  Sex: Female
  Weight: 98.87 kg

DRUGS (19)
  1. XELJANZ [Suspect]
     Indication: RHEUMATOID ARTHRITIS
     Dosage: 5 MG, 2X/DAY
     Route: 048
     Dates: start: 20140226
  2. PLAQUENIL [Concomitant]
     Dosage: UNK
  3. ZANTAC [Concomitant]
     Dosage: UNK
  4. NEXIUM [Concomitant]
     Dosage: UNK
  5. HYDROCHLOROTHIAZIDE [Concomitant]
     Dosage: UNK
  6. LEVOTHYROXINE [Concomitant]
     Dosage: UNK
  7. MICARDIS [Concomitant]
     Dosage: UNK
  8. METOPROLOL [Concomitant]
     Dosage: UNK
  9. TURMERIC [Concomitant]
     Dosage: UNK
  10. CALCIUM [Concomitant]
     Dosage: UNK
  11. VITAMIN D [Concomitant]
  12. VITAMIN B12 [Concomitant]
     Dosage: UNK
  13. CO-Q-10 [Concomitant]
     Dosage: UNK
  14. ACIDOPHILUS [Concomitant]
     Dosage: UNK
  15. CHONDROITIN/GLUCOSAMINE [Concomitant]
     Dosage: UNK
  16. FLAXSEED OIL [Concomitant]
     Dosage: UNK
  17. FISH OIL [Concomitant]
     Dosage: UNK
  18. RESVERATROL [Concomitant]
     Dosage: UNK
  19. ALPHA LIPOIC ACID [Concomitant]
     Dosage: UNK

REACTIONS (2)
  - Diarrhoea [Unknown]
  - Blood pressure increased [Unknown]
